FAERS Safety Report 16915279 (Version 1)
Quarter: 2019Q4

REPORT INFORMATION
  Report Type: Spontaneous
  Country: GB (occurrence: GB)
  Receive Date: 20191014
  Receipt Date: 20191014
  Transmission Date: 20200122
  Serious: Yes (Disabling, Other)
  Sender: FDA-Public Use
  Company Number: GB-MYLANLABS-2019M1096318

PATIENT
  Age: 70 Year
  Sex: Male
  Weight: 73 kg

DRUGS (9)
  1. PREDNISOLONE. [Concomitant]
     Active Substance: PREDNISOLONE
     Dosage: 6 DOSAGE FORM, QD FOR 7 DAYS
     Route: 065
     Dates: start: 20190603, end: 20190604
  2. MONTELUKAST [Concomitant]
     Active Substance: MONTELUKAST SODIUM
     Dosage: 1 DOSAGE FORM, QD (AT NIGHT )
     Route: 065
     Dates: start: 20181002
  3. VENTOLIN [Concomitant]
     Active Substance: ALBUTEROL SULFATE
     Dosage: 2 DOSAGE FORM (AS NECESSARY)
     Route: 055
     Dates: start: 20181002
  4. SERETIDE [Concomitant]
     Active Substance: FLUTICASONE PROPIONATE\SALMETEROL XINAFOATE
     Dosage: 2 DOSAGE FORM, QD
     Route: 055
     Dates: start: 20181002
  5. LOSARTAN. [Concomitant]
     Active Substance: LOSARTAN
     Dosage: 1 DOSAGE FORM, QD
     Route: 065
     Dates: start: 20181002
  6. TIOTROPIUM [Concomitant]
     Active Substance: TIOTROPIUM
     Dosage: 1 DOSAGE FORM, QD
     Route: 055
     Dates: start: 20181002
  7. CARBOCISTEINE [Concomitant]
     Active Substance: CARBOCYSTEINE
     Dosage: 6 DOSAGE FORM, QD
     Route: 065
     Dates: start: 20181002
  8. PHYLLOCONTIN [Concomitant]
     Active Substance: AMINOPHYLLINE
     Dosage: 4 DOSAGE FORM, QD
     Dates: start: 20181002
  9. CIPROFLOXACIN. [Suspect]
     Active Substance: CIPROFLOXACIN
     Indication: PRODUCT USED FOR UNKNOWN INDICATION
     Dosage: 500 MILLIGRAM
     Route: 065
     Dates: start: 20190603

REACTIONS (1)
  - Muscle spasms [Recovered/Resolved]

NARRATIVE: CASE EVENT DATE: 20190603
